FAERS Safety Report 8199064-1 (Version None)
Quarter: 2012Q1

REPORT INFORMATION
  Report Type: 
  Country: None (occurrence: None)
  Receive Date: 20120309
  Receipt Date: 20120301
  Transmission Date: 20120608
  Serious: Yes (Hospitalization)
  Sender: FDA-Public Use
  Company Number: FR-GLAXOSMITHKLINE-B0785402A

PATIENT
  Sex: Male

DRUGS (3)
  1. KEPPRA [Concomitant]
     Indication: CONVULSION
     Dosage: 1500MG PER DAY
     Route: 048
     Dates: start: 20111221
  2. LAMICTAL [Suspect]
     Indication: CONVULSION
     Dosage: 25MG PER DAY
     Route: 048
     Dates: start: 20111227, end: 20120109
  3. PIPERACILLIN AND TAZOBACTAM [Suspect]
     Indication: LUNG DISORDER
     Dosage: 4G PER DAY
     Route: 048
     Dates: start: 20120105, end: 20120112

REACTIONS (2)
  - HEPATOCELLULAR INJURY [None]
  - CHOLESTASIS [None]
